FAERS Safety Report 5097943-5 (Version None)
Quarter: 2006Q3

REPORT INFORMATION
  Report Type: 
  Country: None (occurrence: None)
  Receive Date: 20060905
  Receipt Date: 20060905
  Transmission Date: 20061208
  Serious: Yes (Other)
  Sender: FDA-Public Use
  Company Number: None

PATIENT
  Age: 77 Year
  Sex: Male
  Weight: 70 kg

DRUGS (1)
  1. CIPROFLOXACIN HCL [Suspect]
     Indication: UROSEPSIS
     Dosage: 400 MG Q 24 HR IV 4 DOSAGE TOTAL
     Route: 042

REACTIONS (1)
  - NYSTAGMUS [None]
